FAERS Safety Report 12181585 (Version 1)
Quarter: 2016Q1

REPORT INFORMATION
  Report Type: Report from Study
  Country: US (occurrence: US)
  Receive Date: 20160315
  Receipt Date: 20160315
  Transmission Date: 20160526
  Serious: Yes (Other)
  Sender: FDA-Public Use
  Company Number: US-UCBSA-121934

PATIENT
  Age: 46 Year
  Sex: Male
  Weight: 107.7 kg

DRUGS (6)
  1. DICLOFENAC [Concomitant]
     Active Substance: DICLOFENAC
     Indication: RHEUMATOID ARTHRITIS
     Dosage: 75 MG, 2X/DAY (BID)
     Route: 048
  2. *ADALIMUMAB [Suspect]
     Active Substance: ADALIMUMAB
     Route: 058
     Dates: start: 20130404, end: 20140109
  3. METHOTREXATE [Concomitant]
     Active Substance: METHOTREXATE
     Indication: RHEUMATOID ARTHRITIS
     Dosage: 15 MG, WEEKLY (QW)
     Route: 048
  4. LISINOPRIL. [Concomitant]
     Active Substance: LISINOPRIL
     Indication: HYPERTENSION
     Dosage: 10 MG, ONCE DAILY (QD)
     Route: 048
     Dates: start: 20120720
  5. FOLIC ACID. [Concomitant]
     Active Substance: FOLIC ACID
     Indication: RHEUMATOID ARTHRITIS
     Dosage: 1 MG, ONCE DAILY (QD)
     Route: 048
  6. *ADALIMUMAB [Suspect]
     Active Substance: ADALIMUMAB
     Indication: RHEUMATOID ARTHRITIS
     Route: 058
     Dates: start: 20120628, end: 20130307

REACTIONS (1)
  - Basal cell carcinoma [Recovered/Resolved]

NARRATIVE: CASE EVENT DATE: 20120701
